FAERS Safety Report 8447096 (Version 5)
Quarter: 2012Q4

REPORT INFORMATION
  Report Type: Report from Study
  Country: GB (occurrence: GB)
  Receive Date: 20120308
  Receipt Date: 20121204
  Transmission Date: 20130627
  Serious: Yes (Hospitalization)
  Sender: FDA-Public Use
  Company Number: GB-MPIJNJ-2012-01564

PATIENT

DRUGS (3)
  1. VELCADE [Suspect]
     Indication: MULTIPLE MYELOMA
     Dosage: 2.6 mg, UNK
     Route: 042
     Dates: start: 20120116, end: 20120216
  2. DOXORUBICIN [Suspect]
     Indication: MULTIPLE MYELOMA
     Dosage: 18 mg, UNK
     Route: 042
     Dates: start: 20120116, end: 20120209
  3. DEXAMETHASONE [Suspect]
     Indication: MULTIPLE MYELOMA
     Dosage: 20 mg, UNK
     Route: 048
     Dates: start: 20120116, end: 20120209

REACTIONS (2)
  - Embolism [Recovered/Resolved]
  - Cellulitis [Recovered/Resolved]
